FAERS Safety Report 7438096-5 (Version None)
Quarter: 2011Q2

REPORT INFORMATION
  Report Type: 
  Country: None (occurrence: None)
  Receive Date: 20110426
  Receipt Date: 20110412
  Transmission Date: 20111010
  Serious: Yes (Hospitalization, Other)
  Sender: FDA-Public Use
  Company Number: TW-PAR PHARMACEUTICAL, INC-2011SCPR002898

PATIENT
  Age: 53 Year
  Sex: Male

DRUGS (6)
  1. METRONIDAZOLE [Suspect]
     Indication: ENDOCARDITIS
     Dosage: 500 MG, QID
     Route: 065
  2. CEFTRIAXONE [Concomitant]
     Indication: ENDOCARDITIS
     Dosage: UNK
  3. VANCOMYCIN [Concomitant]
     Indication: ENDOCARDITIS
  4. CEFTRIAXONE [Concomitant]
     Indication: BRAIN ABSCESS
     Dosage: UNK UNK, UNKNOWN
     Route: 065
  5. VANCOMYCIN [Concomitant]
     Indication: BRAIN ABSCESS
     Dosage: UNK, UNKNOWN
     Route: 065
  6. METRONIDAZOLE [Suspect]
     Indication: BRAIN ABSCESS
     Dosage: 500 MG, TID
     Route: 065

REACTIONS (2)
  - TOXIC NEUROPATHY [None]
  - TOXIC ENCEPHALOPATHY [None]
